FAERS Safety Report 17089143 (Version 2)
Quarter: 2019Q4

REPORT INFORMATION
  Report Type: Spontaneous
  Country: US (occurrence: US)
  Receive Date: 20191128
  Receipt Date: 20191217
  Transmission Date: 20200122
  Serious: Yes (Hospitalization, Other)
  Sender: FDA-Public Use
  Company Number: US-AMGEN-USASP2019192401

PATIENT
  Age: 79 Year
  Sex: Female

DRUGS (1)
  1. PROLIA [Suspect]
     Active Substance: DENOSUMAB
     Indication: OSTEOPOROSIS PROPHYLAXIS
     Dosage: 60 MILLIGRAM
     Route: 065
     Dates: start: 2012

REACTIONS (10)
  - Hypertension [Unknown]
  - Haematemesis [Unknown]
  - Pneumonia [Unknown]
  - Lung neoplasm malignant [Unknown]
  - Herpes zoster [Unknown]
  - Psoriasis [Unknown]
  - Varicose vein [Unknown]
  - Rhinorrhoea [Unknown]
  - Off label use [Unknown]
  - Skin disorder [Unknown]

NARRATIVE: CASE EVENT DATE: 2012
